FAERS Safety Report 4913497-5 (Version None)
Quarter: 2006Q1

REPORT INFORMATION
  Report Type: 
  Country: None (occurrence: None)
  Receive Date: 20060216
  Receipt Date: 20060209
  Transmission Date: 20060701
  Serious: Yes (Other)
  Sender: FDA-Public Use
  Company Number: GR-RB-2775-2006

PATIENT
  Age: 56 Year
  Sex: Male
  Weight: 120 kg

DRUGS (7)
  1. BUPRENORPHINE HCL [Suspect]
     Indication: ELECTROLYTE SUBSTITUTION THERAPY
     Route: 048
     Dates: start: 20040319, end: 20060118
  2. BUPRENORPHINE HCL [Suspect]
     Route: 048
     Dates: start: 20060119
  3. AMLODIPINE BESYLATE [Concomitant]
     Indication: HYPERTENSION
     Route: 048
  4. ASPIRIN 10GR TIMED DISINTEGRATION TAB [Concomitant]
     Indication: MYOCARDIAL ISCHAEMIA
     Route: 048
  5. ALLOPURINOL [Concomitant]
     Indication: HYPERURICAEMIA
     Route: 048
  6. DIOSMIN [Concomitant]
     Indication: VASCULITIS
     Route: 048
  7. CARVEDILOL [Concomitant]
     Indication: ANGIOPATHY
     Route: 048

REACTIONS (1)
  - SILENT MYOCARDIAL INFARCTION [None]
